FAERS Safety Report 5557937-X (Version None)
Quarter: 2007Q4

REPORT INFORMATION
  Report Type: 
  Country: None (occurrence: None)
  Receive Date: 20071214
  Receipt Date: 20071205
  Transmission Date: 20080405
  Serious: Yes (Disabling)
  Sender: FDA-Public Use
  Company Number: GB-WYE-H01583207

PATIENT
  Age: 77 Year

DRUGS (7)
  1. AMIODARONE HCL [Suspect]
     Indication: ATRIAL FIBRILLATION
     Dosage: 200MG, DOSE FREQUENCY
     Route: 048
     Dates: start: 20061101, end: 20071028
  2. FUROSEMIDE [Concomitant]
     Dosage: 40MG, DAILY DOSE AND DURATION NOT PROVIDED
     Route: 048
  3. FLUDROCORTISONE ACETATE [Concomitant]
     Indication: HYPERTENSION
     Route: 048
  4. ACETYLSALICYLIC ACID SRT [Concomitant]
     Indication: MYOCARDIAL INFARCTION
     Dosage: 75 MG, DAILY DOSE OR DURATION NOT PROVIDED
     Route: 048
  5. ACETYLSALICYLIC ACID SRT [Concomitant]
     Indication: MYOCARDIAL ISCHAEMIA
  6. CLOPIDOGREL [Concomitant]
     Indication: MYOCARDIAL ISCHAEMIA
     Dosage: 75MG, DAILY DOSE AND DURATION NOT PROVIDED
     Route: 048
  7. CLOPIDOGREL [Concomitant]
     Indication: MYOCARDIAL INFARCTION

REACTIONS (2)
  - PNEUMONIA [None]
  - PULMONARY FIBROSIS [None]
